FAERS Safety Report 10017141 (Version 1)
Quarter: 2014Q1

REPORT INFORMATION
  Report Type: Spontaneous
  Country: BE (occurrence: BE)
  Receive Date: 20140318
  Receipt Date: 20140318
  Transmission Date: 20141002
  Serious: Yes (Hospitalization)
  Sender: FDA-Public Use
  Company Number: BE-AMGEN-BELSP2014018283

PATIENT
  Age: 87 Year
  Sex: Female

DRUGS (7)
  1. PROLIA [Suspect]
     Indication: OSTEOPOROSIS POSTMENOPAUSAL
     Dosage: 60 MG, Q6MO
     Route: 058
  2. TRAZOLAN [Concomitant]
     Indication: SLEEP DISORDER
     Dosage: 100 MG, QD
     Route: 048
  3. SEDACID                            /00661201/ [Concomitant]
     Indication: PROPHYLAXIS
     Dosage: 20 MG, QD
     Route: 048
  4. FERRICURE                          /00023548/ [Concomitant]
     Dosage: UNK UNK, QD
     Route: 048
  5. CYMBALTA [Concomitant]
     Indication: ANXIETY DISORDER
     Dosage: 30 MG, QD
     Route: 048
  6. MEDROL                             /00049601/ [Concomitant]
     Indication: POLYMYALGIA RHEUMATICA
     Dosage: 32 MG, 1 TIME PER 2 DAYS
     Route: 048
  7. MICARDIS [Concomitant]
     Indication: HYPERTENSION
     Dosage: 80 MG, QD
     Route: 048

REACTIONS (4)
  - Dyspnoea [Recovered/Resolved]
  - Malaise [Recovered/Resolved]
  - Chest pain [Recovered/Resolved]
  - Pulmonary hypertension [Recovered/Resolved]
